FAERS Safety Report 19001561 (Version 1)
Quarter: 2021Q1

REPORT INFORMATION
  Report Type: Spontaneous
  Country: US (occurrence: US)
  Receive Date: 20210311
  Receipt Date: 20210311
  Transmission Date: 20210420
  Serious: Yes (Other)
  Sender: FDA-Public Use
  Company Number: None

PATIENT
  Age: 47 Year
  Sex: Female
  Weight: 88.2 kg

DRUGS (1)
  1. XOLAIR [Suspect]
     Active Substance: OMALIZUMAB
     Indication: ASTHMA
     Dates: start: 20200908, end: 20201215

REACTIONS (6)
  - Back pain [None]
  - Eating disorder [None]
  - Alopecia [None]
  - Osteoarthritis [None]
  - Abdominal pain upper [None]
  - Swollen tongue [None]

NARRATIVE: CASE EVENT DATE: 20210206
